FAERS Safety Report 14529992 (Version 1)
Quarter: 2018Q1

REPORT INFORMATION
  Report Type: Spontaneous
  Country: US (occurrence: US)
  Receive Date: 20180214
  Receipt Date: 20180214
  Transmission Date: 20180509
  Serious: Yes (Other)
  Sender: FDA-Public Use
  Company Number: US-BTG INTERNATIONAL LTD-2018BTG01491

PATIENT
  Age: 34 Year
  Weight: 184.85 kg

DRUGS (5)
  1. LEUCOVORIN                         /00566701/ [Concomitant]
     Active Substance: LEUCOVORIN
     Dosage: 250 MG, Q3HRS
     Dates: start: 20171121, end: 20171124
  2. LEUCOVORIN                         /00566701/ [Concomitant]
     Active Substance: LEUCOVORIN
     Dosage: 250MG Q3HRS
     Dates: start: 20171124
  3. VORAXAZE [Suspect]
     Active Substance: GLUCARPIDASE
     Indication: TOXICITY TO VARIOUS AGENTS
     Dosage: 9000 UNITS, UNK
     Dates: start: 20171124
  4. METHOTREXATE. [Suspect]
     Active Substance: METHOTREXATE
     Indication: BURKITT^S LYMPHOMA
     Dosage: 300MG/M2 BOLUS OVER 1 HOUR AND THEN 2700MG/M2 OVER 23 HOURS
     Dates: start: 20171118
  5. LEUCOVORIN                         /00566701/ [Concomitant]
     Active Substance: LEUCOVORIN
     Indication: TOXICITY TO VARIOUS AGENTS
     Dosage: 50MG Q3HRS FOR 1ST 12 HRS THEN 50MG Q 6HRS
     Dates: start: 20171120

REACTIONS (6)
  - Drug effect incomplete [Unknown]
  - Acute kidney injury [Unknown]
  - Liver disorder [Unknown]
  - Bone marrow failure [Unknown]
  - Laboratory test interference [Unknown]
  - Mucosal inflammation [Unknown]

NARRATIVE: CASE EVENT DATE: 201711
